FAERS Safety Report 9219932 (Version 1)
Quarter: 2013Q2

REPORT INFORMATION
  Report Type: Spontaneous
  Country: MX (occurrence: MX)
  Receive Date: 20130409
  Receipt Date: 20130409
  Transmission Date: 20140414
  Serious: Yes (Death)
  Sender: FDA-Public Use
  Company Number: MX-B.I. PHARMACEUTICALS,INC./RIDGEFIELD-2013-MX-00091MX

PATIENT
  Age: 75 Year
  Sex: Male
  Weight: 75 kg

DRUGS (4)
  1. PRADAXAR [Suspect]
     Indication: THROMBOSIS PROPHYLAXIS
     Dosage: 220 MG
     Route: 048
     Dates: start: 201301, end: 201302
  2. GABAPENTINE [Concomitant]
     Indication: PAIN
     Dosage: 600 MG
     Route: 048
     Dates: start: 201301, end: 201302
  3. KEFLEX [Concomitant]
     Indication: ANTIBIOTIC THERAPY
     Dosage: 1500 MG
     Route: 048
     Dates: start: 201301, end: 201302
  4. STADIUM [Concomitant]
     Indication: PAIN
     Dosage: 75 MG
     Route: 048
     Dates: start: 201301, end: 201302

REACTIONS (3)
  - Sudden death [Fatal]
  - Dizziness [Unknown]
  - Fall [None]
